FAERS Safety Report 7399308-X (Version None)
Quarter: 2011Q1

REPORT INFORMATION
  Report Type: 
  Country: None (occurrence: None)
  Receive Date: 20110328
  Receipt Date: 20110314
  Transmission Date: 20110831
  Serious: Yes (Death, Hospitalization)
  Sender: FDA-Public Use
  Company Number: 2010CP000180

PATIENT
  Age: 19 Year
  Sex: Female
  Weight: 50 kg

DRUGS (4)
  1. ACETAMINOPHEN [Concomitant]
  2. TRAMADOL HCL [Concomitant]
  3. PERFALGAN (PARACETAMOL) [Suspect]
     Indication: ARTHRALGIA
     Dosage: 20 DOSAGE FORM, TOTAL, IV
     Route: 042
     Dates: start: 20080618, end: 20080622
  4. SEVOFLURANE [Suspect]
     Dosage: 1 DOSAGE FORM, INH
     Route: 055

REACTIONS (2)
  - HEPATIC FAILURE [None]
  - OVERDOSE [None]
